FAERS Safety Report 19039473 (Version 1)
Quarter: 2021Q1

REPORT INFORMATION
  Report Type: Other
  Country: TH (occurrence: TH)
  Receive Date: 20210322
  Receipt Date: 20210322
  Transmission Date: 20210420
  Serious: Yes (Other)
  Sender: FDA-Public Use
  Company Number: TH-NEOPHARMA INC-000467

PATIENT

DRUGS (1)
  1. AMOXICILLIN/CLAVULANIC ACID [Suspect]
     Active Substance: AMOXICILLIN\CLAVULANIC ACID
     Indication: BURKHOLDERIA PSEUDOMALLEI INFECTION
     Route: 048

REACTIONS (3)
  - Drug resistance [Unknown]
  - Infection reactivation [Unknown]
  - Burkholderia pseudomallei infection [Unknown]
